FAERS Safety Report 6356737-0 (Version None)
Quarter: 2009Q3

REPORT INFORMATION
  Report Type: 
  Country: None (occurrence: None)
  Receive Date: 20090915
  Receipt Date: 20090908
  Transmission Date: 20100115
  Serious: Yes (Death, Hospitalization, Other)
  Sender: FDA-Public Use
  Company Number: FR-BRISTOL-MYERS SQUIBB COMPANY-14682934

PATIENT
  Age: 85 Year
  Sex: Male

DRUGS (2)
  1. ERBITUX [Suspect]
     Indication: COLON CANCER STAGE III
     Dosage: 1ST COURSE ON 12FEB09; 2ND ON 27FEB09; 3RD ON 12MAR09; 4TH ON 26MAR09;
     Route: 042
     Dates: start: 20090212, end: 20090402
  2. CAMPTOSAR [Suspect]
     Indication: COLON CANCER STAGE III
     Dosage: 1ST COURSE ON 12FEB09; 2ND ON 27FEB09; 3RD ON 12MAR09; 4TH ON 26MAR09(DOSE REDUCED TO 120MG)
     Route: 042
     Dates: start: 20090212, end: 20090326

REACTIONS (7)
  - ANAEMIA [None]
  - ASTHENIA [None]
  - DECREASED APPETITE [None]
  - HAEMATOTOXICITY [None]
  - PNEUMONIA ASPIRATION [None]
  - STOMATITIS [None]
  - VOMITING [None]
